FAERS Safety Report 9008913 (Version 2)
Quarter: 2013Q1

REPORT INFORMATION
  Report Type: Spontaneous
  Country: IT (occurrence: IT)
  Receive Date: 20130111
  Receipt Date: 20130114
  Transmission Date: 20140127
  Serious: Yes (Hospitalization)
  Sender: FDA-Public Use
  Company Number: IT-ROCHE-1177314

PATIENT
  Age: 42 Year
  Sex: Male

DRUGS (4)
  1. RIVOTRIL [Suspect]
     Indication: DEPRESSION
     Route: 048
     Dates: start: 20120705, end: 20120706
  2. SEREUPIN [Concomitant]
     Indication: DEPRESSION
     Route: 048
     Dates: start: 20120501, end: 20120907
  3. PANTORC [Concomitant]
     Route: 048
  4. ZESTRIL [Concomitant]
     Indication: HYPERTENSION
     Dosage: 2,5 MG
     Route: 048

REACTIONS (5)
  - Headache [Recovering/Resolving]
  - Suicidal behaviour [Recovering/Resolving]
  - Drug abuse [Unknown]
  - Sopor [Recovering/Resolving]
  - Motor dysfunction [Recovering/Resolving]
